FAERS Safety Report 9096505 (Version 1)
Quarter: 2013Q1

REPORT INFORMATION
  Report Type: Spontaneous
  Country: IT (occurrence: None)
  Receive Date: 20130124
  Receipt Date: 20130124
  Transmission Date: 20140127
  Serious: Yes (Other)
  Sender: FDA-Public Use
  Company Number: DSM-2013-00082

PATIENT
  Age: 52 Year
  Sex: Female

DRUGS (2)
  1. PLAUNAC [Suspect]
     Indication: HYPERTENSION
     Route: 048
     Dates: start: 20121016, end: 20121116
  2. EUTIROX [Concomitant]

REACTIONS (3)
  - Nausea [None]
  - Palpitations [None]
  - Vertigo [None]
